FAERS Safety Report 9098208 (Version 1)
Quarter: 2013Q1

REPORT INFORMATION
  Report Type: Spontaneous
  Country: GB (occurrence: GB)
  Receive Date: 20130213
  Receipt Date: 20130213
  Transmission Date: 20140127
  Serious: Yes (Other)
  Sender: FDA-Public Use
  Company Number: GB-TEVA-383970ISR

PATIENT
  Sex: Female
  Weight: 66.67 kg

DRUGS (1)
  1. CITALOPRAM [Suspect]

REACTIONS (7)
  - Anxiety [Recovered/Resolved]
  - Jaw disorder [Recovered/Resolved]
  - Bruxism [Recovered/Resolved]
  - Ocular icterus [Unknown]
  - Yellow skin [Unknown]
  - Tension [Recovered/Resolved]
  - Altered state of consciousness [Recovered/Resolved]
